FAERS Safety Report 16569997 (Version 1)
Quarter: 2019Q3

REPORT INFORMATION
  Report Type: Report from Study
  Country: US (occurrence: US)
  Receive Date: 20190715
  Receipt Date: 20190715
  Transmission Date: 20191004
  Serious: Yes (Disabling, Other)
  Sender: FDA-Public Use
  Company Number: US-ASTELLAS-2019US016354

PATIENT
  Age: 91 Year
  Sex: Male

DRUGS (3)
  1. ENZALUTAMIDE [Suspect]
     Active Substance: ENZALUTAMIDE
     Indication: PROSTATE CANCER
     Route: 048
     Dates: start: 201812
  2. ENZALUTAMIDE [Interacting]
     Active Substance: ENZALUTAMIDE
     Dosage: UNK, UNKNOWN FREQ. (WEAN HIMSELF OFF FROM ENZALUTAMIDE)
     Route: 048
     Dates: start: 20190501, end: 20190503
  3. LUPRON [Interacting]
     Active Substance: LEUPROLIDE ACETATE
     Indication: PRODUCT USED FOR UNKNOWN INDICATION
     Dosage: UNK UNK, UNKNOWN FREQ.
     Route: 065

REACTIONS (8)
  - Dizziness [Recovering/Resolving]
  - Vertigo [Recovering/Resolving]
  - Drug interaction [Unknown]
  - Amnesia [Not Recovered/Not Resolved]
  - Gait disturbance [Not Recovered/Not Resolved]
  - Fall [Recovered/Resolved]
  - Treatment noncompliance [Unknown]
  - Memory impairment [Not Recovered/Not Resolved]

NARRATIVE: CASE EVENT DATE: 201812
